FAERS Safety Report 25902670 (Version 1)
Quarter: 2025Q4

REPORT INFORMATION
  Report Type: Spontaneous
  Country: EU (occurrence: EU)
  Receive Date: 20251009
  Receipt Date: 20251009
  Transmission Date: 20260117
  Serious: Yes (Other)
  Sender: SANDOZ
  Company Number: EU-NOVPHSZ-PHHY2019PL184795

PATIENT
  Age: 55 Year
  Sex: Female

DRUGS (27)
  1. ENVARSUS XR [Suspect]
     Active Substance: TACROLIMUS
     Dosage: 1 MG, QD
     Route: 065
  2. ENVARSUS XR [Suspect]
     Active Substance: TACROLIMUS
     Dosage: 1.75 MG, QD
     Route: 048
  3. ENVARSUS XR [Suspect]
     Active Substance: TACROLIMUS
     Indication: Immunosuppression
     Dosage: 2 MG, QD
     Route: 048
  4. ENVARSUS XR [Suspect]
     Active Substance: TACROLIMUS
     Indication: Renal transplant
     Dosage: 2 MG, QD
     Route: 048
  5. ENVARSUS XR [Suspect]
     Active Substance: TACROLIMUS
     Dosage: 2.5 MG, QD
     Route: 048
  6. ENVARSUS XR [Suspect]
     Active Substance: TACROLIMUS
     Indication: Immunosuppressant drug therapy
     Dosage: 2 MG, BID
     Route: 065
  7. ENVARSUS XR [Suspect]
     Active Substance: TACROLIMUS
     Dosage: 5 NG/ML,UNK
     Route: 065
  8. FUROSEMIDE [Suspect]
     Active Substance: FUROSEMIDE
     Indication: Hypertension
     Dosage: 40 MG, QD
     Route: 065
  9. FUROSEMIDE [Suspect]
     Active Substance: FUROSEMIDE
     Indication: Dyspepsia
     Dosage: 40 MG, PER DAY
     Route: 065
  10. GLICLAZIDE [Suspect]
     Active Substance: GLICLAZIDE
     Dosage: 6 MG, QD
     Route: 065
  11. GLICLAZIDE [Suspect]
     Active Substance: GLICLAZIDE
     Indication: Diabetes mellitus
     Dosage: 60 MG, QD
     Route: 065
  12. METHYLPREDNISOLONE [Suspect]
     Active Substance: METHYLPREDNISOLONE
     Indication: Immunosuppressant drug therapy
     Dosage: UNK, (TOTAL DOSE 750 MG)
     Route: 065
  13. METHYLPREDNISOLONE [Suspect]
     Active Substance: METHYLPREDNISOLONE
     Indication: Renal transplant
     Dosage: UNK
     Route: 065
  14. MYCOPHENOLATE MOFETIL [Suspect]
     Active Substance: MYCOPHENOLATE MOFETIL
     Indication: Immunosuppressant drug therapy
     Dosage: UNK
     Route: 065
     Dates: start: 201712
  15. MYCOPHENOLATE MOFETIL [Suspect]
     Active Substance: MYCOPHENOLATE MOFETIL
     Indication: Renal transplant
     Dosage: UNK
     Route: 065
  16. MYCOPHENOLATE MOFETIL [Suspect]
     Active Substance: MYCOPHENOLATE MOFETIL
     Dosage: UNK
     Route: 065
     Dates: start: 201712
  17. METFORMIN [Suspect]
     Active Substance: METFORMIN HYDROCHLORIDE
     Indication: Blood glucose abnormal
     Dosage: UNK
     Route: 065
  18. METFORMIN [Suspect]
     Active Substance: METFORMIN HYDROCHLORIDE
     Indication: Diabetes mellitus
     Dosage: EXTENDED RELEASE
     Route: 065
  19. PANTOPRAZOLE [Suspect]
     Active Substance: PANTOPRAZOLE
     Indication: Dyspepsia
     Dosage: 20 MG, QD
     Route: 065
  20. PANTOPRAZOLE [Suspect]
     Active Substance: PANTOPRAZOLE
     Dosage: 40 MG, QD
     Route: 065
  21. PREDNISONE [Suspect]
     Active Substance: PREDNISONE
     Indication: Immunosuppressant drug therapy
     Dosage: 10 MG, QD
     Route: 065
  22. PREDNISONE [Suspect]
     Active Substance: PREDNISONE
     Indication: Renal transplant
     Dosage: 5 MG, QD
     Route: 065
  23. PREDNISONE [Suspect]
     Active Substance: PREDNISONE
     Dosage: REDUCED TO TARGET 5 MG/D IN THE THIRD  MONTH AFTER TRANSPLANTATION
     Route: 065
     Dates: start: 201712
  24. PROGRAF [Suspect]
     Active Substance: TACROLIMUS
     Dosage: UNK UNK, QD
     Route: 065
  25. PROGRAF [Suspect]
     Active Substance: TACROLIMUS
     Indication: Immunosuppressant drug therapy
     Dosage: UNK
     Route: 065
     Dates: start: 201712
  26. PROGRAF [Suspect]
     Active Substance: TACROLIMUS
     Indication: Renal transplant
     Dosage: UNK
     Route: 065
  27. TACROLIMUS [Suspect]
     Active Substance: TACROLIMUS
     Indication: Immunosuppression
     Dosage: CONVERTED FROM TAKEN TWICE A DAY  (PROGRAF), TO THE PREPARATION USED ONCE A  DAY (ENVARSUS)
     Route: 065

REACTIONS (8)
  - Delayed graft function [Unknown]
  - Cytomegalovirus infection [Unknown]
  - Tubulointerstitial nephritis [Unknown]
  - Weight increased [Unknown]
  - Diabetes mellitus [Recovered/Resolved]
  - Leukopenia [Unknown]
  - Dyspepsia [Unknown]
  - Abdominal pain [Unknown]

NARRATIVE: CASE EVENT DATE: 20180401
